FAERS Safety Report 20963691 (Version 1)
Quarter: 2022Q2

REPORT INFORMATION
  Report Type: Spontaneous
  Country: TR (occurrence: TR)
  Receive Date: 20220615
  Receipt Date: 20220615
  Transmission Date: 20220720
  Serious: Yes (Other)
  Sender: FDA-Public Use
  Company Number: TR-PFIZER INC-202200810445

PATIENT
  Age: 17 Year
  Sex: Male

DRUGS (4)
  1. PREGABALIN [Suspect]
     Active Substance: PREGABALIN
     Indication: Depression
     Dosage: 900-1200 MG/DAY
  2. PREGABALIN [Suspect]
     Active Substance: PREGABALIN
     Indication: Anhedonia
  3. PREGABALIN [Suspect]
     Active Substance: PREGABALIN
     Indication: Fatigue
  4. PREGABALIN [Suspect]
     Active Substance: PREGABALIN
     Indication: Withdrawal syndrome

REACTIONS (3)
  - Drug abuse [Unknown]
  - Drug withdrawal syndrome [Unknown]
  - Off label use [Unknown]
